FAERS Safety Report 6368218-9 (Version None)
Quarter: 2009Q3

REPORT INFORMATION
  Report Type: 
  Country: None (occurrence: None)
  Receive Date: 20090922
  Receipt Date: 20090918
  Transmission Date: 20100115
  Serious: Yes (Life-Threatening, Hospitalization)
  Sender: FDA-Public Use
  Company Number: US-BRISTOL-MYERS SQUIBB COMPANY-14785521

PATIENT
  Age: 60 Year
  Sex: Male
  Weight: 85 kg

DRUGS (11)
  1. CARBOPLATIN [Suspect]
     Indication: NON-SMALL CELL LUNG CANCER STAGE IV
     Dosage: DAY 1 EVERY 21 DAYS; 1DF=  AUC 6
     Route: 042
     Dates: start: 20090904
  2. ALIMTA [Suspect]
     Indication: NON-SMALL CELL LUNG CANCER STAGE IV
     Dosage: DAY 1 EVERY 21 DAYS;
     Route: 042
     Dates: start: 20090904
  3. BEVACIZUMAB [Suspect]
     Indication: NON-SMALL CELL LUNG CANCER STAGE IV
     Dosage: DAY 1 EVERY 21 DAYS
     Route: 042
     Dates: start: 20090904
  4. NORCO [Concomitant]
     Dates: start: 20090731
  5. MEGESTROL ACETATE [Concomitant]
     Dates: start: 20090822
  6. DURAGESIC-100 [Concomitant]
     Dates: start: 20090904
  7. FLUCONAZOLE [Concomitant]
     Dates: start: 20090901
  8. DEXAMETHASONE [Concomitant]
     Dates: start: 20090824
  9. FOLIC ACID [Concomitant]
     Dates: start: 20090824
  10. NEXIUM [Concomitant]
  11. RADIATION THERAPY [Concomitant]
     Indication: METASTASES TO SPINE
     Dates: end: 20090901

REACTIONS (1)
  - LARGE INTESTINE PERFORATION [None]
